FAERS Safety Report 16313700 (Version 1)
Quarter: 2019Q2

REPORT INFORMATION
  Report Type: Spontaneous
  Country: US (occurrence: US)
  Receive Date: 20190515
  Receipt Date: 20190515
  Transmission Date: 20190711
  Serious: Yes (Hospitalization)
  Sender: FDA-Public Use
  Company Number: US-PFIZER INC-2019205958

PATIENT
  Age: 78 Year
  Sex: Female
  Weight: 93.42 kg

DRUGS (1)
  1. IBRANCE [Suspect]
     Active Substance: PALBOCICLIB
     Indication: BREAST CANCER METASTATIC
     Dosage: UNK
     Route: 048
     Dates: start: 2016, end: 2019

REACTIONS (3)
  - Anaemia [Unknown]
  - Neoplasm progression [Unknown]
  - Urinary tract infection [Unknown]
